FAERS Safety Report 20133809 (Version 7)
Quarter: 2023Q2

REPORT INFORMATION
  Report Type: Report from Study
  Country: US (occurrence: US)
  Receive Date: 20211201
  Receipt Date: 20230614
  Transmission Date: 20230722
  Serious: Yes (Other)
  Sender: FDA-Public Use
  Company Number: US-Taiho Oncology Inc-EU-2021-00931

PATIENT
  Age: 61 Year
  Sex: Male

DRUGS (4)
  1. LONSURF [Suspect]
     Active Substance: TIPIRACIL HYDROCHLORIDE\TRIFLURIDINE
     Indication: Rectal cancer
     Dosage: CYCLE 1
     Route: 048
     Dates: start: 20210304
  2. LONSURF [Suspect]
     Active Substance: TIPIRACIL HYDROCHLORIDE\TRIFLURIDINE
     Dosage: CYCLE UNKNOWN, 80 MG IN THE MORNING AND 60 MG IN THE EVENING?DAILY DOSE: 140 MILLIGRAM(S)
     Route: 048
     Dates: start: 20210407
  3. LONSURF [Suspect]
     Active Substance: TIPIRACIL HYDROCHLORIDE\TRIFLURIDINE
     Dosage: CYCLE UNKNOWN
     Route: 048
     Dates: start: 20210514, end: 20210708
  4. AVASTIN [Suspect]
     Active Substance: BEVACIZUMAB
     Indication: Rectal cancer metastatic
     Route: 042
     Dates: start: 20201221, end: 20211108

REACTIONS (11)
  - Nausea [Recovered/Resolved]
  - Diarrhoea [Recovered/Resolved]
  - Disease progression [Unknown]
  - Neutrophil count decreased [Recovered/Resolved]
  - Hypophagia [Recovered/Resolved]
  - Hypotension [Recovered/Resolved]
  - Alopecia [Not Recovered/Not Resolved]
  - Fatigue [Unknown]
  - Asthenia [Recovered/Resolved]
  - Neutropenia [Recovered/Resolved]
  - Decreased appetite [Recovering/Resolving]

NARRATIVE: CASE EVENT DATE: 20210326
